FAERS Safety Report 8443349 (Version 9)
Quarter: 2012Q4

REPORT INFORMATION
  Report Type: 
  Country: US (occurrence: US)
  Receive Date: 20120306
  Receipt Date: 20120910
  Transmission Date: 20130627
  Serious: Yes (Other)
  Sender: FDA-Public Use
  Company Number: US-PFIZER INC-2012058817

PATIENT
  Age: 66 Year
  Sex: Male
  Weight: 87.53 kg

DRUGS (2)
  1. CHANTIX [Suspect]
     Indication: SMOKING CESSATION THERAPY
     Dosage: 0.5 mg, 1x/day
     Route: 048
     Dates: start: 20120223, end: 201202
  2. CHANTIX [Suspect]
     Dosage: 0.5 mg, 2x/day
     Route: 048
     Dates: start: 201202, end: 20120306

REACTIONS (5)
  - Dysuria [Not Recovered/Not Resolved]
  - Abnormal dreams [Recovered/Resolved]
  - Nightmare [Unknown]
  - Fear [Unknown]
  - Somnambulism [Unknown]
